FAERS Safety Report 5230368-8 (Version None)
Quarter: 2007Q1

REPORT INFORMATION
  Report Type: 
  Country: None (occurrence: None)
  Receive Date: 20070206
  Receipt Date: 20070126
  Transmission Date: 20070707
  Serious: Yes (Other)
  Sender: FDA-Public Use
  Company Number: AR-PFIZER INC-2007007970

PATIENT
  Sex: Female

DRUGS (3)
  1. LYRICA [Suspect]
     Dosage: DAILY DOSE:600MG
  2. PHENOBARBITAL TAB [Concomitant]
  3. RIVOTRIL [Concomitant]
     Route: 048

REACTIONS (1)
  - CONVULSION [None]
